FAERS Safety Report 14947409 (Version 1)
Quarter: 2018Q2

REPORT INFORMATION
  Report Type: Spontaneous
  Country: JP (occurrence: JP)
  Receive Date: 20180529
  Receipt Date: 20180529
  Transmission Date: 20180711
  Serious: Yes (Other)
  Sender: FDA-Public Use
  Company Number: JP-PFIZER INC-2018211757

PATIENT
  Age: 58 Year
  Sex: Male
  Weight: 61.9 kg

DRUGS (2)
  1. AMPICILLIN SODIUM/SULBACTAM SODIUM [Suspect]
     Active Substance: AMPICILLIN SODIUM\SULBACTAM SODIUM
     Indication: INFECTION
     Dosage: UNK
  2. MINOCYCLINE [Suspect]
     Active Substance: MINOCYCLINE\MINOCYCLINE HYDROCHLORIDE
     Indication: INFECTION
     Dosage: UNK

REACTIONS (6)
  - Vasculitis [Recovering/Resolving]
  - Blood creatine phosphokinase increased [None]
  - Muscular weakness [None]
  - Pain [None]
  - Rhabdomyolysis [Recovering/Resolving]
  - Condition aggravated [Recovering/Resolving]
